FAERS Safety Report 6160437-X (Version None)
Quarter: 2009Q2

REPORT INFORMATION
  Report Type: 
  Country: None (occurrence: None)
  Receive Date: 20090415
  Receipt Date: 20090415
  Transmission Date: 20091009
  Serious: Yes (Hospitalization)
  Sender: FDA-Public Use
  Company Number: None

PATIENT
  Age: 58 Year
  Sex: Male
  Weight: 77 kg

DRUGS (2)
  1. PEG-INTRON [Suspect]
     Dosage: 150 MCG QWEEK SQ`
     Route: 058
     Dates: start: 20081106, end: 20090310
  2. RIBAVIRIN [Suspect]

REACTIONS (2)
  - AZOTAEMIA [None]
  - HAEMOLYTIC ANAEMIA [None]
